FAERS Safety Report 25586349 (Version 1)
Quarter: 2025Q3

REPORT INFORMATION
  Report Type: Spontaneous
  Country: IR (occurrence: IR)
  Receive Date: 20250721
  Receipt Date: 20250721
  Transmission Date: 20251020
  Serious: Yes (Death, Hospitalization, Other)
  Sender: PFIZER
  Company Number: IR-PFIZER INC-PV202500085241

PATIENT
  Age: 6 Year
  Sex: Female

DRUGS (15)
  1. CYTARABINE [Suspect]
     Active Substance: CYTARABINE
     Indication: B-cell type acute leukaemia
     Dosage: 3 MG/M2, DAILY
     Dates: start: 202212
  2. METHOTREXATE [Suspect]
     Active Substance: METHOTREXATE
     Indication: B-cell type acute leukaemia
     Dosage: 2000 MG/M2, DAILY
     Dates: start: 202212
  3. ASPARAGINASE [Suspect]
     Active Substance: ASPARAGINASE
     Indication: B-cell type acute leukaemia
     Dates: start: 202212
  4. VINCRISTINE [Suspect]
     Active Substance: VINCRISTINE
     Indication: B-cell type acute leukaemia
     Dosage: 1.5 MG/M2, DAILY
     Dates: start: 202212
  5. CYCLOPHOSPHAMIDE [Suspect]
     Active Substance: CYCLOPHOSPHAMIDE
     Indication: B-cell type acute leukaemia
     Dosage: 1000 MG/M2, DAILY
     Dates: start: 202212
  6. COTRIMOXAZOLE [Concomitant]
     Active Substance: SULFAMETHOXAZOLE\TRIMETHOPRIM
     Dosage: 5 ML PER DAY
     Dates: start: 202212
  7. DOMPERIDONE [Concomitant]
     Active Substance: DOMPERIDONE
     Indication: Gastrooesophageal reflux disease
     Dates: start: 202211
  8. DOMPERIDONE [Concomitant]
     Active Substance: DOMPERIDONE
     Indication: Gastritis
  9. DOMPERIDONE [Concomitant]
     Active Substance: DOMPERIDONE
     Indication: Gastrointestinal disorder
  10. PANTOPRAZOLE [Concomitant]
     Active Substance: PANTOPRAZOLE
     Indication: Gastrooesophageal reflux disease
     Dates: start: 202211
  11. PANTOPRAZOLE [Concomitant]
     Active Substance: PANTOPRAZOLE
     Indication: Gastritis
  12. PANTOPRAZOLE [Concomitant]
     Active Substance: PANTOPRAZOLE
     Indication: Gastrointestinal disorder
  13. SUCRALFATE [Concomitant]
     Active Substance: SUCRALFATE
     Indication: Gastrooesophageal reflux disease
     Dates: start: 202211
  14. SUCRALFATE [Concomitant]
     Active Substance: SUCRALFATE
     Indication: Gastritis
  15. SUCRALFATE [Concomitant]
     Active Substance: SUCRALFATE
     Indication: Gastrointestinal disorder

REACTIONS (4)
  - Wernicke^s encephalopathy [Fatal]
  - Metastases to meninges [Fatal]
  - Sepsis [Fatal]
  - Rash morbilliform [Unknown]

NARRATIVE: CASE EVENT DATE: 20220101
